FAERS Safety Report 5710447-9 (Version None)
Quarter: 2008Q2

REPORT INFORMATION
  Report Type: 
  Country: None (occurrence: None)
  Receive Date: 20080418
  Receipt Date: 20080410
  Transmission Date: 20081010
  Serious: Yes (Death)
  Sender: FDA-Public Use
  Company Number: PT-ABBOTT-08P-130-0445037-00

PATIENT
  Sex: Male
  Weight: 75 kg

DRUGS (3)
  1. KALETRA [Suspect]
     Indication: HIV INFECTION
     Dosage: 800MG/200 MG (TOTAL DAILY DOSE) 2 200/50 TABLETS (UNIT DOSE)
     Route: 048
     Dates: start: 20050530
  2. ERGOTAMINE [Interacting]
     Indication: HEADACHE
     Route: 048
  3. TRUVADA [Concomitant]
     Indication: HIV TEST POSITIVE
     Route: 048
     Dates: start: 20060101

REACTIONS (3)
  - DRUG INTERACTION [None]
  - ISCHAEMIA [None]
  - RHABDOMYOLYSIS [None]
